FAERS Safety Report 5772714-2 (Version None)
Quarter: 2008Q2

REPORT INFORMATION
  Report Type: 
  Country: None (occurrence: None)
  Receive Date: 20080613
  Receipt Date: 20080605
  Transmission Date: 20081010
  Serious: Yes (Other)
  Sender: FDA-Public Use
  Company Number: US-PFIZER INC-2008048006

PATIENT
  Sex: Male
  Weight: 90.909 kg

DRUGS (6)
  1. DETROL LA [Suspect]
     Indication: INCONTINENCE
  2. ATENOLOL [Concomitant]
  3. GLYBURIDE [Concomitant]
  4. METFORMIN [Concomitant]
  5. POTASSIUM CHLORIDE [Concomitant]
  6. COZAAR [Concomitant]

REACTIONS (1)
  - ABDOMINAL DISTENSION [None]
